FAERS Safety Report 21116891 (Version 2)
Quarter: 2022Q3

REPORT INFORMATION
  Report Type: Spontaneous
  Country: CN (occurrence: CN)
  Receive Date: 20220722
  Receipt Date: 20220804
  Transmission Date: 20221026
  Serious: Yes (Death, Hospitalization)
  Sender: FDA-Public Use
  Company Number: CN-TEVA-2022-CN-2055658

PATIENT
  Age: 51 Year
  Sex: Female

DRUGS (2)
  1. CYCLOSPORINE [Suspect]
     Active Substance: CYCLOSPORINE
     Indication: Dermatomyositis
     Dosage: 150 MILLIGRAM DAILY;
     Route: 065
  2. PREDNISONE [Suspect]
     Active Substance: PREDNISONE
     Indication: Dermatomyositis
     Dosage: 25 MILLIGRAM DAILY;
     Route: 065

REACTIONS (9)
  - Joint tuberculosis [Fatal]
  - Septic shock [Fatal]
  - Thrombocytopenia [Fatal]
  - Multiple organ dysfunction syndrome [Fatal]
  - Liver injury [Fatal]
  - Acute kidney injury [Fatal]
  - Pyrexia [Fatal]
  - Procalcitonin increased [Fatal]
  - Septic cardiomyopathy [Fatal]
